FAERS Safety Report 20161445 (Version 1)
Quarter: 2021Q4

REPORT INFORMATION
  Report Type: Spontaneous
  Country: US (occurrence: None)
  Receive Date: 20211207
  Receipt Date: 20211207
  Transmission Date: 20220303
  Serious: No
  Sender: FDA-Public Use
  Company Number: None

PATIENT
  Age: 56 Year
  Sex: Male
  Weight: 166.05 kg

DRUGS (17)
  1. EVEROLIMUS [Suspect]
     Active Substance: EVEROLIMUS
     Indication: Neuroendocrine tumour
     Dosage: FREQUENCY : DAILY;?
     Route: 048
     Dates: start: 20210616
  2. Isosorbide mononitrate ER 30mg [Concomitant]
  3. Clonidine 0.2mg/24Hr [Concomitant]
  4. CARVEDILOL [Concomitant]
     Active Substance: CARVEDILOL
  5. TORSEMIDE [Concomitant]
     Active Substance: TORSEMIDE
  6. ACETAMINOPHEN [Concomitant]
     Active Substance: ACETAMINOPHEN
  7. Verapamil ER 180mg [Concomitant]
  8. Vitamin D3 1.25mg [Concomitant]
  9. HYDRALAZINE [Concomitant]
     Active Substance: HYDRALAZINE HYDROCHLORIDE
  10. CETIRIZINE [Concomitant]
     Active Substance: CETIRIZINE HYDROCHLORIDE
  11. Bisacodyl EC 5mg [Concomitant]
  12. NOVOLOG [Concomitant]
     Active Substance: INSULIN ASPART
  13. ALBUTEROL SULFATE [Concomitant]
     Active Substance: ALBUTEROL SULFATE
  14. DULOXETINE [Concomitant]
     Active Substance: DULOXETINE
  15. ASPIRIN [Concomitant]
     Active Substance: ASPIRIN
  16. LEVOTHYROXINE [Concomitant]
     Active Substance: LEVOTHYROXINE
  17. LINZESS [Concomitant]
     Active Substance: LINACLOTIDE

REACTIONS (1)
  - Renal disorder [None]

NARRATIVE: CASE EVENT DATE: 20211207
